FAERS Safety Report 17239619 (Version 1)
Quarter: 2020Q1

REPORT INFORMATION
  Report Type: Spontaneous
  Country: US (occurrence: US)
  Receive Date: 20200106
  Receipt Date: 20200106
  Transmission Date: 20200409
  Serious: No
  Sender: FDA-Public Use
  Company Number: US-EPIC PHARMA LLC-2019EPC00129

PATIENT
  Age: 69 Year
  Sex: Female
  Weight: 75.74 kg

DRUGS (5)
  1. DOXYCYCLINE HYCLATE. [Suspect]
     Active Substance: DOXYCYCLINE HYCLATE
     Indication: HEADACHE
  2. DOXYCYCLINE HYCLATE. [Suspect]
     Active Substance: DOXYCYCLINE HYCLATE
     Indication: OROPHARYNGEAL PAIN
  3. ATENOLOL. [Concomitant]
     Active Substance: ATENOLOL
  4. DOXYCYCLINE HYCLATE. [Suspect]
     Active Substance: DOXYCYCLINE HYCLATE
     Indication: EAR PAIN
     Dosage: 1 TABLET EVERY 12 HOURS
     Route: 048
     Dates: start: 20190417, end: 20190427
  5. LIPITOR [Concomitant]
     Active Substance: ATORVASTATIN CALCIUM

REACTIONS (7)
  - Lip swelling [Recovered/Resolved]
  - Weight decreased [Recovered/Resolved]
  - Back pain [Recovered/Resolved]
  - Blood urine present [Recovered/Resolved]
  - Vaginal discharge [Not Recovered/Not Resolved]
  - External ear pain [Not Recovered/Not Resolved]
  - Cough [Not Recovered/Not Resolved]

NARRATIVE: CASE EVENT DATE: 201904
